FAERS Safety Report 8494093-2 (Version None)
Quarter: 2012Q3

REPORT INFORMATION
  Report Type: 
  Country: None (occurrence: None)
  Receive Date: 20120702
  Receipt Date: 20120702
  Transmission Date: 20120928
  Serious: Yes (Other)
  Sender: FDA-Public Use
  Company Number: None

PATIENT
  Sex: Female
  Weight: 95.1 kg

DRUGS (2)
  1. KEPRA 750 MG [Suspect]
     Indication: EPILEPSY
     Dosage: 4 QD PO
     Route: 048
     Dates: start: 20110310
  2. KEPRA 750 MG [Suspect]
     Indication: PARALYSIS
     Dosage: 4 QD PO
     Route: 048
     Dates: start: 20110310

REACTIONS (2)
  - DIZZINESS [None]
  - PRODUCT SUBSTITUTION ISSUE [None]
